FAERS Safety Report 4865937-8 (Version None)
Quarter: 2005Q4

REPORT INFORMATION
  Report Type: 
  Country: None (occurrence: None)
  Receive Date: 20051226
  Receipt Date: 20050901
  Transmission Date: 20060501
  Serious: Yes (Other)
  Sender: FDA-Public Use
  Company Number: PHEH2005US09769

PATIENT
  Age: 83 Year
  Sex: Male

DRUGS (4)
  1. ZOMETA [Suspect]
     Indication: MULTIPLE MYELOMA
     Dosage: 4 MG EVERY 4 WEEKS
     Dates: start: 20020606, end: 20050802
  2. DEXAMETHASONE [Concomitant]
     Indication: CHEMOTHERAPY
     Dosage: 40 MG, D1-4, 9-12, 17-20
     Route: 042
     Dates: start: 20020606, end: 20020701
  3. VINCRISTINE [Concomitant]
     Indication: MULTIPLE MYELOMA
     Dosage: 0.4 MG X 4DAYS
     Route: 042
     Dates: start: 20020606, end: 20020610
  4. ADRIAMYCIN [Concomitant]
     Indication: MULTIPLE MYELOMA
     Dosage: 20 MG X4DAYS
     Route: 042
     Dates: start: 20020606, end: 20020610

REACTIONS (7)
  - BONE DISORDER [None]
  - ORAL SOFT TISSUE DISORDER [None]
  - OSTEOMYELITIS [None]
  - OSTEONECROSIS [None]
  - PAIN IN JAW [None]
  - SWELLING [None]
  - TOOTH EXTRACTION [None]
